FAERS Safety Report 6983976-8 (Version None)
Quarter: 2010Q3

REPORT INFORMATION
  Report Type: 
  Country: None (occurrence: None)
  Receive Date: 20100915
  Receipt Date: 20090331
  Transmission Date: 20110219
  Serious: No
  Sender: FDA-Public Use
  Company Number: US-WYE-H08780209

PATIENT

DRUGS (1)
  1. ADVIL PM [Suspect]
     Dosage: UNKNOWN
     Route: 048

REACTIONS (3)
  - DRUG EFFECT PROLONGED [None]
  - FATIGUE [None]
  - FEELING ABNORMAL [None]
